FAERS Safety Report 6093306-4 (Version None)
Quarter: 2009Q1

REPORT INFORMATION
  Report Type: 
  Country: None (occurrence: None)
  Receive Date: 20090224
  Receipt Date: 20090224
  Transmission Date: 20090719
  Serious: No
  Sender: FDA-Public Use
  Company Number: None

PATIENT

DRUGS (1)
  1. BISACODYL 5MG/BOEHRINGER INGELHEIM PHARMACEUTICAL [Suspect]
     Indication: PREOPERATIVE CARE
     Dosage: X4 TABS (20MG) 1 WEEK PRIOR TO PROCEDURE ORAL SEE ATTACHED SPREADSHEET
     Route: 048

REACTIONS (1)
  - INTESTINAL ISCHAEMIA [None]
